FAERS Safety Report 21827755 (Version 2)
Quarter: 2023Q2

REPORT INFORMATION
  Report Type: Spontaneous
  Country: US (occurrence: US)
  Receive Date: 20230106
  Receipt Date: 20230426
  Transmission Date: 20230722
  Serious: No
  Sender: FDA-Public Use
  Company Number: US-VIIV HEALTHCARE LIMITED-US2022AMR196077

PATIENT
  Age: 32 Year
  Sex: Male

DRUGS (5)
  1. RILPIVIRINE [Suspect]
     Active Substance: RILPIVIRINE
     Indication: HIV test
     Dosage: UNK UNK, Z: MONTHLY OR EVERY OTHER MONTH
     Route: 030
     Dates: start: 20221125, end: 20221201
  2. EDURANT [Suspect]
     Active Substance: RILPIVIRINE HYDROCHLORIDE
     Indication: HIV test
     Route: 048
     Dates: start: 202301
  3. CABOTEGRAVIR [Suspect]
     Active Substance: CABOTEGRAVIR
     Indication: HIV test
     Dosage: UNK UNK, Z: MONTHLY OR EVERY OTHER MONTH
     Route: 030
     Dates: start: 20221125, end: 20221201
  4. VOCABRIA [Suspect]
     Active Substance: CABOTEGRAVIR SODIUM
     Indication: HIV test
     Route: 048
     Dates: start: 202301
  5. DOVATO [Concomitant]
     Active Substance: DOLUTEGRAVIR SODIUM\LAMIVUDINE
     Indication: HIV test
     Route: 065

REACTIONS (6)
  - Pruritus [Recovering/Resolving]
  - Urticaria [Recovered/Resolved]
  - Plastic surgery [Unknown]
  - Rash [Recovering/Resolving]
  - Intentional product use issue [Unknown]
  - Off label use [Unknown]

NARRATIVE: CASE EVENT DATE: 20221126
